FAERS Safety Report 16364074 (Version 1)
Quarter: 2019Q2

REPORT INFORMATION
  Report Type: Spontaneous
  Country: FR (occurrence: FR)
  Receive Date: 20190528
  Receipt Date: 20190528
  Transmission Date: 20190711
  Serious: Yes (Other)
  Sender: FDA-Public Use
  Company Number: FR-PROVELL PHARMACEUTICALS-2067512

PATIENT
  Age: 54 Year
  Sex: Female
  Weight: 115 kg

DRUGS (17)
  1. APROVEL [Concomitant]
     Active Substance: IRBESARTAN
  2. GLIMEPIRIDE. [Concomitant]
     Active Substance: GLIMEPIRIDE
     Dates: start: 20140919
  3. CARDENSIEL [Concomitant]
     Active Substance: BISOPROLOL FUMARATE
     Dates: start: 20170210
  4. ALDACTAZINE [Concomitant]
     Active Substance: ALTHIAZIDE\SPIRONOLACTONE
     Dates: start: 20140919
  5. DUPHASTON [Concomitant]
     Active Substance: DYDROGESTERONE
     Dates: start: 20180203, end: 20180217
  6. ALDACTAZINE [Concomitant]
     Active Substance: ALTHIAZIDE\SPIRONOLACTONE
  7. VICTOZA [Concomitant]
     Active Substance: LIRAGLUTIDE
     Route: 058
     Dates: start: 20140919, end: 2018
  8. EUTHYROX [Suspect]
     Active Substance: LEVOTHYROXINE SODIUM
     Indication: POST PROCEDURAL HYPOTHYROIDISM
     Dates: start: 20170505
  9. EUTHYROX [Suspect]
     Active Substance: LEVOTHYROXINE SODIUM
  10. BISOPROLOL [Concomitant]
     Active Substance: BISOPROLOL
     Dates: start: 20140919
  11. AMAREL [Concomitant]
     Active Substance: GLIMEPIRIDE
     Dates: start: 20170616
  12. GLUCOPHAGE [Concomitant]
     Active Substance: METFORMIN HYDROCHLORIDE
     Dates: start: 20131001
  13. IRBESARTAN. [Concomitant]
     Active Substance: IRBESARTAN
  14. INSULIN INJECTION [Concomitant]
     Active Substance: INSULIN NOS
     Dates: start: 201811
  15. INEXIUM [Concomitant]
     Active Substance: ESOMEPRAZOLE
  16. AMAREL [Concomitant]
     Active Substance: GLIMEPIRIDE
  17. TARDYFERON [Concomitant]
     Active Substance: FERROUS SULFATE

REACTIONS (37)
  - Migraine [None]
  - Influenza like illness [None]
  - Insomnia [None]
  - Vestibular function test abnormal [None]
  - Asthenia [None]
  - Fatigue [Not Recovered/Not Resolved]
  - Back pain [None]
  - Sciatica [None]
  - Anxiety [None]
  - Loss of consciousness [None]
  - Alopecia [Not Recovered/Not Resolved]
  - Fall [None]
  - Head injury [None]
  - Constipation [None]
  - Palpitations [None]
  - Lipase increased [None]
  - Viral infection [None]
  - Asthma [None]
  - Cystitis [None]
  - Paronychia [None]
  - Headache [None]
  - Facial paralysis [None]
  - Vertigo [Not Recovered/Not Resolved]
  - Ligament sprain [None]
  - General physical condition decreased [None]
  - Joint injury [None]
  - Blood triglycerides increased [None]
  - Dizziness [Not Recovered/Not Resolved]
  - Myalgia [None]
  - Somnolence [Not Recovered/Not Resolved]
  - Nasopharyngitis [None]
  - Muscle spasms [None]
  - Dyspnoea exertional [None]
  - Deafness bilateral [None]
  - Skin wound [None]
  - Ear infection [None]
  - Intentional dose omission [None]

NARRATIVE: CASE EVENT DATE: 2017
